FAERS Safety Report 10152015 (Version 1)
Quarter: 2014Q2

REPORT INFORMATION
  Report Type: Report from Study
  Country: US (occurrence: US)
  Receive Date: 20140505
  Receipt Date: 20140505
  Transmission Date: 20141212
  Serious: Yes (Other)
  Sender: FDA-Public Use
  Company Number: PHEH2014US008404

PATIENT
  Sex: Female

DRUGS (9)
  1. DIOVAN HCT [Suspect]
     Dosage: UNK UKN, UNK
  2. DIOVAN [Suspect]
     Dosage: UNK
  3. DIOVAN [Suspect]
     Dosage: HIGHER DOSE, UNK
  4. DIOVAN [Suspect]
     Dosage: 80 MG, UNK
  5. HYDROCHLOROTHIAZIDE [Suspect]
     Dosage: UNK UKN, UNK
  6. CALCIUM [Suspect]
     Dosage: UNK UKN, UNK
  7. VITAMIN D [Concomitant]
     Dosage: UNK UKN, UNK
  8. PREVACID [Concomitant]
     Dosage: UNK UKN, UNK
  9. PREMARIN [Concomitant]
     Indication: VULVOVAGINAL DRYNESS
     Dosage: UNK UKN, UNK

REACTIONS (8)
  - Fall [Unknown]
  - Lower limb fracture [Unknown]
  - Pain [Unknown]
  - Anxiety [Unknown]
  - Dyspepsia [Unknown]
  - Abdominal discomfort [Unknown]
  - Blood pressure increased [Unknown]
  - Drug ineffective [Unknown]
